FAERS Safety Report 17017820 (Version 21)
Quarter: 2021Q3

REPORT INFORMATION
  Report Type: Report from Study
  Country: GB (occurrence: GB)
  Receive Date: 20191111
  Receipt Date: 20210908
  Transmission Date: 20211014
  Serious: Yes (Hospitalization, Disabling, Other)
  Sender: FDA-Public Use
  Company Number: GB-SA-2019SA307128

PATIENT
  Age: 8 Year
  Sex: Female
  Weight: 23.35 kg

DRUGS (36)
  1. VANDETANIB. [Suspect]
     Active Substance: VANDETANIB
     Dosage: 100 MG, QOD (65 MG/M2)
     Route: 048
     Dates: start: 20191018, end: 20200207
  2. EVEROLIMUS. [Suspect]
     Active Substance: EVEROLIMUS
     Dosage: 5 MG, QD MONDAY,WEDNESDAY AND FRIDAY AND 2.5 MG ON TUESDAY,THURSDAY,SATURDAY AND SUNDAY
     Route: 048
     Dates: start: 20190717, end: 20191014
  3. DEXAMETHASONE. [Suspect]
     Active Substance: DEXAMETHASONE
     Indication: PRODUCT USED FOR UNKNOWN INDICATION
     Dosage: 9.2 MG, QD (4.6 MG)
     Route: 048
     Dates: start: 20200207, end: 20200221
  4. DEXAMETHASONE. [Suspect]
     Active Substance: DEXAMETHASONE
     Dosage: 3.5 MG, QD
     Route: 048
     Dates: start: 20200212
  5. DEXAMETHASONE. [Suspect]
     Active Substance: DEXAMETHASONE
     Dosage: UNK (VARIABLE 4MG BD WEANED TO 0.5MG SECOND DAILY)
     Route: 065
     Dates: start: 20191101, end: 20200221
  6. COTRIMOXAZOLE [Concomitant]
     Active Substance: SULFAMETHOXAZOLE\TRIMETHOPRIM
     Dosage: UNK
     Route: 065
  7. COTRIMOXAZOLE [Concomitant]
     Active Substance: SULFAMETHOXAZOLE\TRIMETHOPRIM
     Dosage: 360 MG
     Route: 065
  8. EVEROLIMUS. [Suspect]
     Active Substance: EVEROLIMUS
     Dosage: 2.5 MG, QD TUESDAY/THURSDAY/SATURDAY/SUNDAY
     Route: 048
     Dates: start: 20200212
  9. LOPERAMIDE [Suspect]
     Active Substance: LOPERAMIDE
     Indication: DIARRHOEA
  10. COTRIMOXAZOLE [Concomitant]
     Active Substance: SULFAMETHOXAZOLE\TRIMETHOPRIM
     Dosage: UNK MG
     Route: 065
  11. COTRIMOXAZOLE [Concomitant]
     Active Substance: SULFAMETHOXAZOLE\TRIMETHOPRIM
     Route: 065
  12. VANDETANIB. [Suspect]
     Active Substance: VANDETANIB
     Dosage: 54 MG, QD (54 MG/M2, QD)
     Route: 048
     Dates: start: 20200212, end: 20200302
  13. DEXAMETHASONE. [Suspect]
     Active Substance: DEXAMETHASONE
     Dosage: 3.5 MG, Q12H
     Route: 048
     Dates: start: 20210210
  14. DEXAMETHASONE. [Suspect]
     Active Substance: DEXAMETHASONE
     Dosage: UNK
     Route: 065
  15. PARACETAMOL [Suspect]
     Active Substance: ACETAMINOPHEN
     Dosage: UNK UNK, QD PM
     Route: 048
  16. COTRIMOXAZOLE [Concomitant]
     Active Substance: SULFAMETHOXAZOLE\TRIMETHOPRIM
     Dosage: 360 MG 720 MG, 1X/DAY (360 MG BD ON SAT/SUN ONLY)
     Route: 065
  17. EVEROLIMUS. [Suspect]
     Active Substance: EVEROLIMUS
     Dosage: 5 MG QD MONDAY/WEDNESDAY/FRIDAY
     Route: 048
     Dates: start: 20200212
  18. EVEROLIMUS. [Suspect]
     Active Substance: EVEROLIMUS
     Dosage: 5 MG ON MONDAY, WEDNESDAY AND FRIDAY AND 2.5 MG ON TUESDAY, THURSDAY, SATURDAY AND SUNDAY;
     Route: 048
     Dates: start: 20191001
  19. EVEROLIMUS. [Suspect]
     Active Substance: EVEROLIMUS
     Dosage: UNK (5 MG MONDAY/WEDNESDAY/FRIDAY AND 2.5 MG TUESDAY/THURSDAY/SATURDAY/SUNDAY)
     Route: 048
     Dates: start: 20190717, end: 20200207
  20. DEXAMETHASONE. [Suspect]
     Active Substance: DEXAMETHASONE
     Dosage: 1.6 MG, QD
     Route: 048
     Dates: start: 20200215, end: 20200221
  21. RANITIDINE. [Suspect]
     Active Substance: RANITIDINE
     Indication: GASTROOESOPHAGEAL REFLUX DISEASE
     Dosage: 50 MG, BID
     Route: 048
     Dates: start: 20191018
  22. LOPERAMIDE [Suspect]
     Active Substance: LOPERAMIDE
     Indication: PROPHYLAXIS
  23. LANSOPRAZOLE. [Suspect]
     Active Substance: LANSOPRAZOLE
     Indication: PRODUCT USED FOR UNKNOWN INDICATION
     Dosage: UNK
     Route: 065
  24. COTRIMOXAZOLE [Concomitant]
     Active Substance: SULFAMETHOXAZOLE\TRIMETHOPRIM
     Route: 065
  25. VANDETANIB. [Suspect]
     Active Substance: VANDETANIB
     Indication: BRAIN STEM GLIOMA
     Dosage: 100 MG, QOD (65 MG/M2)
     Route: 065
     Dates: start: 20191009, end: 20191014
  26. COTRIMOXAZOLE [Concomitant]
     Active Substance: SULFAMETHOXAZOLE\TRIMETHOPRIM
     Dosage: 360 MG
     Route: 065
  27. EVEROLIMUS. [Suspect]
     Active Substance: EVEROLIMUS
     Dosage: 5 MG, QD MONDAY/WEDNESDAY/FRIDAY
     Route: 048
     Dates: start: 20210207
  28. COTRIMOXAZOLE [Concomitant]
     Active Substance: SULFAMETHOXAZOLE\TRIMETHOPRIM
     Dosage: 360 MG BD ON SAT/SUN ONLY;
     Route: 065
  29. DEXAMETHASONE. [Concomitant]
     Active Substance: DEXAMETHASONE
     Dosage: 4 MG
     Route: 065
     Dates: start: 20191101, end: 20200211
  30. VANDETANIB. [Suspect]
     Active Substance: VANDETANIB
     Dosage: 100 MG, QOW
     Route: 065
     Dates: start: 20200212, end: 20200302
  31. EVEROLIMUS. [Suspect]
     Active Substance: EVEROLIMUS
     Dosage: UNK (5 MG MONDAY/WEDNESDAY/FRIDAY AND 2.5 MG TUESDAY/THURSDAY/SATURDAY/SUNDAY)
     Route: 048
     Dates: start: 20200213
  32. LOPERAMIDE [Suspect]
     Active Substance: LOPERAMIDE
     Indication: DIARRHOEA
     Dosage: 2 MG, Q4D (2 MG ONE CAPSULE UP TO FOUR TIMES A DAY)
     Route: 065
  33. VANDETANIB. [Suspect]
     Active Substance: VANDETANIB
     Dosage: 65 MG/M2, QOW
     Route: 065
     Dates: start: 20200316, end: 20200420
  34. EVEROLIMUS. [Suspect]
     Active Substance: EVEROLIMUS
     Indication: BRAIN STEM GLIOMA
     Dosage: 2.5 MG TUESDAY/THURSDAY/SATURDAY/SUNDAY
     Route: 048
     Dates: start: 20210207
  35. RANITIDINE. [Suspect]
     Active Substance: RANITIDINE
     Dosage: UNK UNK, BID
     Route: 048
  36. RANITIDINE. [Concomitant]
     Active Substance: RANITIDINE
     Dosage: 50 MG, Q12H
     Dates: start: 20191018

REACTIONS (35)
  - Facial paralysis [Recovered/Resolved]
  - Neutrophil count decreased [Recovered/Resolved]
  - Flatulence [Recovered/Resolved]
  - Reflux gastritis [Recovered/Resolved]
  - Ocular hyperaemia [Recovered/Resolved]
  - Blood creatinine increased [Unknown]
  - Blood cholesterol increased [Not Recovered/Not Resolved]
  - Blood triglycerides increased [Unknown]
  - Ataxia [Recovered/Resolved]
  - Electrocardiogram QT prolonged [Recovered/Resolved]
  - Hypophagia [Not Recovered/Not Resolved]
  - Blood cholesterol increased [Recovered/Resolved]
  - Product use in unapproved indication [Unknown]
  - Hemiparesis [Recovered/Resolved]
  - White blood cell count decreased [Not Recovered/Not Resolved]
  - Blood creatinine increased [Recovered/Resolved]
  - Myoclonus [Recovered/Resolved]
  - Stomatitis [Recovered/Resolved]
  - Blood creatinine increased [Recovered/Resolved]
  - Neutrophil count decreased [Recovered/Resolved]
  - Medication error [Unknown]
  - Gastrooesophageal reflux disease [Recovered/Resolved]
  - Off label use [Unknown]
  - Alanine aminotransferase increased [Recovered/Resolved]
  - Brain stem glioma [Unknown]
  - Blood cholesterol increased [Unknown]
  - Hypophosphataemia [Recovered/Resolved]
  - Abdominal distension [Recovered/Resolved]
  - Lymphocyte count decreased [Not Recovered/Not Resolved]
  - Abdominal distension [Recovered/Resolved]
  - Facial paralysis [Recovered/Resolved]
  - Disease progression [Unknown]
  - Hypertension [Recovered/Resolved]
  - Ataxia [Not Recovered/Not Resolved]
  - Malignant neoplasm progression [Unknown]

NARRATIVE: CASE EVENT DATE: 20191106
